FAERS Safety Report 9457255 (Version 2)
Quarter: 2013Q3

REPORT INFORMATION
  Report Type: Report from Study
  Country: US (occurrence: US)
  Receive Date: 20130814
  Receipt Date: 20130920
  Transmission Date: 20140515
  Serious: Yes (Other)
  Sender: FDA-Public Use
  Company Number: PHEH2013US016722

PATIENT
  Age: 49 Year
  Sex: Female
  Weight: 89.8 kg

DRUGS (2)
  1. GILENYA [Suspect]
     Indication: MULTIPLE SCLEROSIS
     Dosage: 0.5 MG, QD
     Route: 048
     Dates: start: 20120116, end: 201203
  2. DIMETHYL FUMARATE [Suspect]
     Indication: MULTIPLE SCLEROSIS
     Dosage: 240 MG, BID
     Route: 048
     Dates: start: 201307, end: 20130805

REACTIONS (1)
  - Malignant melanoma [Recovered/Resolved with Sequelae]
